FAERS Safety Report 6843540-8 (Version None)
Quarter: 2010Q3

REPORT INFORMATION
  Report Type: 
  Country: None (occurrence: None)
  Receive Date: 20100715
  Receipt Date: 20100707
  Transmission Date: 20110219
  Serious: Yes (Other)
  Sender: FDA-Public Use
  Company Number: DE-ASTRAZENECA-2010SE32501

PATIENT
  Age: 10 Day
  Sex: Female
  Weight: 3.4 kg

DRUGS (1)
  1. SEROQUEL [Suspect]
     Route: 064

REACTIONS (1)
  - PYLORUS DILATION PROCEDURE [None]
